FAERS Safety Report 8321025-X (Version None)
Quarter: 2012Q2

REPORT INFORMATION
  Report Type: 
  Country: None (occurrence: None)
  Receive Date: 20120430
  Receipt Date: 20120426
  Transmission Date: 20120825
  Serious: Yes (Death, Other)
  Sender: FDA-Public Use
  Company Number: PHHY2012JP032537

PATIENT
  Age: 37 Year
  Sex: Male

DRUGS (8)
  1. INSULIN [Concomitant]
  2. MYCOPHENOLIC ACID [Suspect]
     Indication: PROPHYLAXIS AGAINST TRANSPLANT REJECTION
  3. TACROLIMUS [Suspect]
     Indication: PROPHYLAXIS AGAINST TRANSPLANT REJECTION
  4. SIMULECT [Suspect]
     Indication: PROPHYLAXIS AGAINST TRANSPLANT REJECTION
     Dosage: 20 MG, UNK
     Route: 042
  5. ADRENAL CORTEX EXTRACT INJ [Concomitant]
     Indication: PROPHYLAXIS AGAINST TRANSPLANT REJECTION
  6. CORTICOSTEROID NOS [Concomitant]
     Indication: PROPHYLAXIS AGAINST TRANSPLANT REJECTION
  7. MYCOPHENOLATE MOFETIL [Concomitant]
     Indication: PROPHYLAXIS AGAINST TRANSPLANT REJECTION
  8. NEORAL [Suspect]
     Indication: PROPHYLAXIS AGAINST TRANSPLANT REJECTION

REACTIONS (8)
  - GENERAL PHYSICAL HEALTH DETERIORATION [None]
  - RASH GENERALISED [None]
  - DIARRHOEA [None]
  - POST TRANSPLANT DISTAL LIMB SYNDROME [None]
  - LUNG INFECTION PSEUDOMONAL [None]
  - GRAFT VERSUS HOST DISEASE IN SKIN [None]
  - THROMBOTIC MICROANGIOPATHY [None]
  - BACTERAEMIA [None]
